FAERS Safety Report 8743974 (Version 2)
Quarter: 2012Q4

REPORT INFORMATION
  Report Type: 
  Country: US (occurrence: US)
  Receive Date: 20120824
  Receipt Date: 20121203
  Transmission Date: 20130627
  Serious: No
  Sender: FDA-Public Use
  Company Number: US-009507513-1208USA009403

PATIENT
  Age: 25 Year
  Sex: Male

DRUGS (1)
  1. SAPHRIS [Suspect]
     Indication: BIPOLAR DISORDER
     Dosage: 5 mg, UNK
     Route: 060
     Dates: start: 20120815, end: 20120815

REACTIONS (1)
  - Haematemesis [Recovered/Resolved]
